FAERS Safety Report 8368915-X (Version None)
Quarter: 2012Q2

REPORT INFORMATION
  Report Type: 
  Country: None (occurrence: None)
  Receive Date: 20120516
  Receipt Date: 20120420
  Transmission Date: 20120825
  Serious: Yes (Other)
  Sender: FDA-Public Use
  Company Number: CH-2012-1967

PATIENT
  Sex: Female

DRUGS (2)
  1. CARBOPLATIN [Suspect]
     Indication: LUNG CANCER METASTATIC
  2. NAVELBINE [Suspect]
     Indication: LUNG CANCER METASTATIC

REACTIONS (2)
  - IIIRD NERVE PARALYSIS [None]
  - DIPLOPIA [None]
